FAERS Safety Report 13580946 (Version 5)
Quarter: 2018Q3

REPORT INFORMATION
  Report Type: Spontaneous
  Country: US (occurrence: US)
  Receive Date: 20170525
  Receipt Date: 20180727
  Transmission Date: 20181010
  Serious: Yes (Other)
  Sender: FDA-Public Use
  Company Number: US-PFIZER INC-2017225519

PATIENT
  Age: 68 Year
  Sex: Male
  Weight: 92.53 kg

DRUGS (29)
  1. LYRICA [Suspect]
     Active Substance: PREGABALIN
     Dosage: 200 MG, 3X/DAY
     Dates: start: 2017
  2. OXYCONTIN [Concomitant]
     Active Substance: OXYCODONE HYDROCHLORIDE
     Dosage: 10 MG, 3X/DAY (AS NEEDED)
     Dates: start: 2017
  3. TAMSULOSIN [Concomitant]
     Active Substance: TAMSULOSIN
     Dosage: 0.4 MG, 1X/DAY
     Dates: start: 201706
  4. PAXIL [Concomitant]
     Active Substance: PAROXETINE HYDROCHLORIDE
     Indication: PAIN
     Dosage: UNK
     Dates: start: 2012
  5. MAGNESIUM [Concomitant]
     Active Substance: MAGNESIUM
     Dosage: UNK
     Dates: start: 201801
  6. LYRICA [Suspect]
     Active Substance: PREGABALIN
     Dosage: 800 MG, 3X/DAY
  7. VITAMIN B1 [Concomitant]
     Active Substance: THIAMINE HYDROCHLORIDE
     Indication: CHRONIC INFLAMMATORY DEMYELINATING POLYRADICULONEUROPATHY
     Dosage: 100 MG, UNK
     Dates: start: 201706
  8. VITAMIN C [Concomitant]
     Active Substance: ASCORBIC ACID
     Dosage: 500 MG, UNK
     Dates: start: 2017
  9. VITAMIN B12 [Concomitant]
     Active Substance: CYANOCOBALAMIN
     Dosage: UNK
     Dates: start: 2016
  10. ZINC. [Concomitant]
     Active Substance: ZINC
     Dosage: 50 MG, UNK
     Dates: start: 2017
  11. LYRICA [Suspect]
     Active Substance: PREGABALIN
     Indication: CHRONIC INFLAMMATORY DEMYELINATING POLYRADICULONEUROPATHY
     Dosage: UNK (LOWER DOSE)
  12. MORPHINE [Concomitant]
     Active Substance: MORPHINE
     Indication: PAIN
     Dosage: 60 MG, 2X/DAY(LONG ACTING BID (TWICE A DAY))
     Dates: start: 2014
  13. ASPIRIN. [Concomitant]
     Active Substance: ASPIRIN
     Indication: CARDIAC DISORDER
     Dosage: 81 MG, DAILY
     Dates: start: 2005
  14. SIMVASTATIN. [Concomitant]
     Active Substance: SIMVASTATIN
     Indication: BLOOD CHOLESTEROL INCREASED
     Dosage: 20 MG, DAILY
     Dates: start: 2015
  15. PRILOSEC [Concomitant]
     Active Substance: OMEPRAZOLE MAGNESIUM
     Indication: GASTRITIS
     Dosage: 40 MG, DAILY
     Dates: start: 2016
  16. PHENERGAN [Concomitant]
     Active Substance: PROMETHAZINE HYDROCHLORIDE
     Dosage: 25 MG, AS NEEDED
     Dates: start: 2015
  17. TRAZODONE [Concomitant]
     Active Substance: TRAZODONE HYDROCHLORIDE
     Dosage: 100 MG, UNK (FROM JUN TO 30SEP)
  18. TAMSULOSIN [Concomitant]
     Active Substance: TAMSULOSIN
     Indication: BENIGN PROSTATIC HYPERPLASIA
     Dosage: UNK
     Dates: start: 2010
  19. OXYCODONE [Concomitant]
     Active Substance: OXYCODONE
     Dosage: 10 MG, AS NEEDED
  20. PAXIL [Concomitant]
     Active Substance: PAROXETINE HYDROCHLORIDE
     Indication: ANXIETY
     Dosage: 40 MG, DAILY
     Dates: start: 2016
  21. VITAMIN B1 [Concomitant]
     Active Substance: THIAMINE HYDROCHLORIDE
     Indication: NERVE INJURY
     Dosage: 50 MG, DAILY
     Dates: start: 201704
  22. CLARITIN [Concomitant]
     Active Substance: LORATADINE
     Indication: HYPERSENSITIVITY
     Dosage: 5 MG, AS NEEDED
  23. LYRICA [Suspect]
     Active Substance: PREGABALIN
     Dosage: 200 MG, 3X/DAY
     Route: 048
     Dates: start: 201701, end: 201703
  24. OXYCONTIN [Concomitant]
     Active Substance: OXYCODONE HYDROCHLORIDE
     Indication: PAIN
     Dosage: 10 MG, 2X/DAY(AS NEEDED)
  25. VITAMIN D3 [Concomitant]
     Active Substance: CHOLECALCIFEROL
     Indication: FRACTURE
     Dosage: 2000 IU, 1X/DAY
     Dates: start: 2010
  26. PAXIL [Concomitant]
     Active Substance: PAROXETINE HYDROCHLORIDE
     Indication: PANIC ATTACK
  27. PRILOSEC [Concomitant]
     Active Substance: OMEPRAZOLE MAGNESIUM
     Indication: GIARDIASIS
  28. VENLAFAXINE [Concomitant]
     Active Substance: VENLAFAXINE HYDROCHLORIDE
     Dosage: 37.5 MG, UNK
     Dates: start: 201802
  29. GAVICON [Concomitant]
     Indication: DYSPEPSIA
     Dosage: UNK

REACTIONS (4)
  - Condition aggravated [Not Recovered/Not Resolved]
  - Overdose [Unknown]
  - Product use in unapproved indication [Unknown]
  - Benign prostatic hyperplasia [Not Recovered/Not Resolved]

NARRATIVE: CASE EVENT DATE: 201710
